FAERS Safety Report 9216578 (Version 3)
Quarter: 2013Q2

REPORT INFORMATION
  Report Type: Spontaneous
  Country: US (occurrence: US)
  Receive Date: 20130408
  Receipt Date: 20130605
  Transmission Date: 20140414
  Serious: Yes (Death)
  Sender: FDA-Public Use
  Company Number: US-ELI_LILLY_AND_COMPANY-US201303009965

PATIENT
  Age: 84 Year
  Sex: Female

DRUGS (9)
  1. FORTEO [Suspect]
     Indication: OSTEOPOROSIS
     Dosage: 20 UG, QD
     Route: 058
     Dates: start: 20111108
  2. FORTEO [Suspect]
     Dosage: 20 UG, QD
     Route: 058
  3. ASA [Concomitant]
  4. COREG [Concomitant]
  5. VITAMIN D [Concomitant]
  6. SYNTHROID [Concomitant]
  7. ZANTAC [Concomitant]
  8. ZOCOR [Concomitant]
  9. MELATONIN [Concomitant]

REACTIONS (2)
  - Coronary artery disease [Fatal]
  - Hypotension [Fatal]
